FAERS Safety Report 7502518-1 (Version None)
Quarter: 2011Q2

REPORT INFORMATION
  Report Type: 
  Country: None (occurrence: None)
  Receive Date: 20110517
  Receipt Date: 20110511
  Transmission Date: 20111010
  Serious: Yes (Death)
  Sender: FDA-Public Use
  Company Number: 2011050056

PATIENT
  Age: 52 Year
  Sex: Female

DRUGS (5)
  1. OXYCONTIN [Concomitant]
  2. FENTANYL [Concomitant]
  3. ONSOLIS [Suspect]
     Dosage: 1600 MCG (400 MCG,4 IN 1 D),BU
     Route: 002
     Dates: start: 20110315
  4. DILAUDID [Concomitant]
  5. ONSOLIS [Suspect]
     Dosage: TO BE TITRATED UP TO 4-200 MCG FILMS ( UP TO 4 TIMES DAILY),BU
     Route: 002
     Dates: start: 20110228, end: 20110315

REACTIONS (2)
  - RENAL CELL CARCINOMA [None]
  - NEOPLASM PROGRESSION [None]
